FAERS Safety Report 18700161 (Version 2)
Quarter: 2021Q1

REPORT INFORMATION
  Report Type: Other
  Country: US (occurrence: US)
  Receive Date: 20210104
  Receipt Date: 20210201
  Transmission Date: 20210419
  Serious: Yes (Hospitalization, Other)
  Sender: FDA-Public Use
  Company Number: US-ROCHE-2741135

PATIENT
  Age: 70 Year
  Sex: Male

DRUGS (1)
  1. OCREVUS [Suspect]
     Active Substance: OCRELIZUMAB
     Indication: RELAPSING MULTIPLE SCLEROSIS
     Dosage: (PRESCRIBED AS 300 MG ON DAY 1 AND DAY 15)
     Route: 042
     Dates: start: 20190619

REACTIONS (8)
  - Pneumonia [Unknown]
  - Muscular weakness [Unknown]
  - Asthenia [Unknown]
  - Fall [Unknown]
  - COVID-19 [Unknown]
  - Loss of consciousness [Not Recovered/Not Resolved]
  - Weight decreased [Unknown]
  - Gait inability [Unknown]

NARRATIVE: CASE EVENT DATE: 202012
